FAERS Safety Report 21080900 (Version 5)
Quarter: 2024Q1

REPORT INFORMATION
  Report Type: Spontaneous
  Country: CA (occurrence: None)
  Receive Date: 20220714
  Receipt Date: 20240109
  Transmission Date: 20240409
  Serious: Yes (Other)
  Sender: FDA-Public Use
  Company Number: CA-PFIZER INC-202200939105

PATIENT
  Age: 63 Year
  Sex: Male

DRUGS (37)
  1. METHOTREXATE [Suspect]
     Active Substance: METHOTREXATE
     Indication: Product used for unknown indication
     Dosage: 2.5 MG, DAILY (1 EVERY 1 DAYS)
  2. METHOTREXATE [Suspect]
     Active Substance: METHOTREXATE
  3. METHOTREXATE [Suspect]
     Active Substance: METHOTREXATE
     Dosage: 1 EVERY 1 DAYS
  4. ATORVASTATIN CALCIUM [Suspect]
     Active Substance: ATORVASTATIN CALCIUM
     Indication: Product used for unknown indication
  5. CANDESARTAN CILEXETIL [Suspect]
     Active Substance: CANDESARTAN CILEXETIL
     Indication: Product used for unknown indication
  6. ESOMEPRAZOLE MAGNESIUM [Suspect]
     Active Substance: ESOMEPRAZOLE\ESOMEPRAZOLE MAGNESIUM\ESOMEPRAZOLE MAGNESIUM DIHYDRATE
     Indication: Product used for unknown indication
  7. ESOMEPRAZOLE MAGNESIUM [Suspect]
     Active Substance: ESOMEPRAZOLE\ESOMEPRAZOLE MAGNESIUM\ESOMEPRAZOLE MAGNESIUM DIHYDRATE
  8. ESOMEPRAZOLE MAGNESIUM [Suspect]
     Active Substance: ESOMEPRAZOLE\ESOMEPRAZOLE MAGNESIUM\ESOMEPRAZOLE MAGNESIUM DIHYDRATE
  9. PREDNISONE [Suspect]
     Active Substance: PREDNISONE
     Indication: Product used for unknown indication
  10. VEDOLIZUMAB [Suspect]
     Active Substance: VEDOLIZUMAB
     Indication: Crohn^s disease
  11. VEDOLIZUMAB [Suspect]
     Active Substance: VEDOLIZUMAB
  12. ENTYVIO [Suspect]
     Active Substance: VEDOLIZUMAB
     Indication: Crohn^s disease
  13. ENTYVIO [Suspect]
     Active Substance: VEDOLIZUMAB
  14. ENTYVIO [Suspect]
     Active Substance: VEDOLIZUMAB
  15. ENTYVIO [Suspect]
     Active Substance: VEDOLIZUMAB
  16. ENTYVIO [Suspect]
     Active Substance: VEDOLIZUMAB
  17. ENTYVIO [Suspect]
     Active Substance: VEDOLIZUMAB
  18. ENTYVIO [Suspect]
     Active Substance: VEDOLIZUMAB
  19. ENTYVIO [Suspect]
     Active Substance: VEDOLIZUMAB
  20. ENTYVIO [Suspect]
     Active Substance: VEDOLIZUMAB
  21. ENTYVIO [Suspect]
     Active Substance: VEDOLIZUMAB
  22. ENTYVIO [Suspect]
     Active Substance: VEDOLIZUMAB
  23. ENTYVIO [Suspect]
     Active Substance: VEDOLIZUMAB
  24. ENTYVIO [Suspect]
     Active Substance: VEDOLIZUMAB
  25. ENTYVIO [Suspect]
     Active Substance: VEDOLIZUMAB
  26. CARVEDILOL [Concomitant]
     Active Substance: CARVEDILOL
  27. ENTOCORT [Concomitant]
     Active Substance: BUDESONIDE
  28. ENTOCORT [Concomitant]
     Active Substance: BUDESONIDE
     Dosage: 3 EVERY 1 DAYS
  29. IBUPROFEN [Concomitant]
     Active Substance: IBUPROFEN
  30. IRON [Concomitant]
     Active Substance: IRON
  31. LEUCOVORIN CALCIUM [Concomitant]
     Active Substance: LEUCOVORIN CALCIUM
  32. OLMESARTAN [Concomitant]
     Active Substance: OLMESARTAN
  33. SOLU-CORTEF [Concomitant]
     Active Substance: HYDROCORTISONE SODIUM SUCCINATE
     Indication: Premedication
  34. SOLU-CORTEF [Concomitant]
     Active Substance: HYDROCORTISONE SODIUM SUCCINATE
  35. XELJANZ [Concomitant]
     Active Substance: TOFACITINIB CITRATE
  36. METHOTREXATE SODIUM [Concomitant]
     Active Substance: METHOTREXATE SODIUM
     Dosage: 2.5 MG, DAILY
  37. LEUCOVORIN CALCIUM [Concomitant]
     Active Substance: LEUCOVORIN CALCIUM
     Indication: Crohn^s disease

REACTIONS (15)
  - Off label use [Not Recovered/Not Resolved]
  - Drug ineffective [Not Recovered/Not Resolved]
  - Cataract [Not Recovered/Not Resolved]
  - Abdominal discomfort [Not Recovered/Not Resolved]
  - Arthralgia [Not Recovered/Not Resolved]
  - Asthenia [Not Recovered/Not Resolved]
  - Blood iron decreased [Not Recovered/Not Resolved]
  - Diarrhoea [Not Recovered/Not Resolved]
  - Fatigue [Not Recovered/Not Resolved]
  - Large intestine polyp [Not Recovered/Not Resolved]
  - Nausea [Not Recovered/Not Resolved]
  - Nipple pain [Not Recovered/Not Resolved]
  - Nipple swelling [Not Recovered/Not Resolved]
  - Vision blurred [Not Recovered/Not Resolved]
  - Polyp [Not Recovered/Not Resolved]
